FAERS Safety Report 10790209 (Version 1)
Quarter: 2015Q1

REPORT INFORMATION
  Report Type: Not Available
  Country: AU (occurrence: AU)
  Receive Date: 20150212
  Receipt Date: 20150212
  Transmission Date: 20150721
  Serious: Yes (Hospitalization)
  Sender: FDA-Public Use
  Company Number: AU-MUNDIPHARMA DS AND PHARMACOVIGILANCE-GBR-2015-0025413

PATIENT
  Age: 60 Year
  Sex: Female
  Weight: 74 kg

DRUGS (12)
  1. COMFAROL FORTE [Suspect]
     Active Substance: ACETAMINOPHEN\CODEINE PHOSPHATE
     Indication: PAIN
     Dosage: 500MG/30MG, PRN
     Route: 048
     Dates: start: 20141213
  2. CLEXANE [Concomitant]
     Active Substance: ENOXAPARIN SODIUM
     Dosage: UNK
     Dates: start: 20141213
  3. NEXIUM [Concomitant]
     Active Substance: ESOMEPRAZOLE MAGNESIUM
  4. OXYCODONE HYDROCHLORIDE. [Suspect]
     Active Substance: OXYCODONE HYDROCHLORIDE
     Indication: PAIN
     Dosage: 10 MG, PRN
     Route: 048
     Dates: start: 20141213
  5. EUTROXSIG [Concomitant]
     Active Substance: LEVOTHYROXINE SODIUM
  6. CLONAZEPAM. [Concomitant]
     Active Substance: CLONAZEPAM
     Dosage: 6 MG, UNK
     Dates: start: 20141212
  7. TRAMEDO [Suspect]
     Active Substance: TRAMADOL
     Indication: PAIN
     Dosage: 400 MG, UNK
     Route: 048
     Dates: start: 20141213, end: 20141214
  8. SEROQUEL [Concomitant]
     Active Substance: QUETIAPINE FUMARATE
  9. FENTANYL. [Suspect]
     Active Substance: FENTANYL
     Indication: PAIN
     Dosage: UNK
     Route: 042
     Dates: start: 20141212, end: 20141213
  10. CEPHAZOLIN [Concomitant]
     Active Substance: CEFAZOLIN
     Dosage: UNK
     Dates: start: 20141212, end: 20141213
  11. ESCITALOPRAM [Concomitant]
     Active Substance: ESCITALOPRAM OXALATE
  12. PARACETAMOL [Concomitant]
     Active Substance: ACETAMINOPHEN
     Dosage: UNK
     Dates: start: 20141212

REACTIONS (5)
  - Sedation [Recovered/Resolved]
  - Overdose [Recovered/Resolved]
  - Oxygen saturation decreased [Recovered/Resolved]
  - Tachycardia [Recovered/Resolved]
  - Hypotension [Recovered/Resolved]

NARRATIVE: CASE EVENT DATE: 20141213
